FAERS Safety Report 11652189 (Version 1)
Quarter: 2015Q4

REPORT INFORMATION
  Report Type: Report from Study
  Country: ES (occurrence: ES)
  Receive Date: 20151022
  Receipt Date: 20151022
  Transmission Date: 20160304
  Serious: Yes (Other)
  Sender: FDA-Public Use
  Company Number: ES-VIIV HEALTHCARE LIMITED-ES2014GSK008553

PATIENT
  Sex: Female
  Weight: 62 kg

DRUGS (6)
  1. RALTEGRAVIR. [Concomitant]
     Active Substance: RALTEGRAVIR
     Indication: HIV INFECTION
     Dosage: 800 MG, QD
     Dates: start: 20090127
  2. DARUNAVIR [Concomitant]
     Active Substance: DARUNAVIR
     Indication: HIV INFECTION
     Dosage: 1200 MG, QD
     Dates: start: 20051115
  3. ETRAVIRINE [Concomitant]
     Active Substance: ETRAVIRINE
     Indication: HIV INFECTION
     Dosage: 400 MG, QD
     Dates: start: 20071128
  4. LAMIVUDINE. [Concomitant]
     Active Substance: LAMIVUDINE
     Indication: HIV INFECTION
     Dosage: 1 TABLET
     Dates: start: 20100806
  5. MARAVIROC [Suspect]
     Active Substance: MARAVIROC
     Indication: HIV INFECTION
     Dosage: 300 MG, QD
     Dates: start: 20071128
  6. RITONAVIR. [Concomitant]
     Active Substance: RITONAVIR
     Indication: HIV INFECTION
     Dosage: 200 MG, QD
     Dates: start: 20051115

REACTIONS (1)
  - Anogenital dysplasia [Recovering/Resolving]

NARRATIVE: CASE EVENT DATE: 20140928
